FAERS Safety Report 11398366 (Version 1)
Quarter: 2015Q3

REPORT INFORMATION
  Report Type: Spontaneous
  Country: US (occurrence: None)
  Receive Date: 20150818
  Receipt Date: 20150818
  Transmission Date: 20151125
  Serious: Yes (Hospitalization)
  Sender: FDA-Public Use
  Company Number: C-15-068

PATIENT
  Age: 62 Year
  Sex: Male
  Weight: 104.33 kg

DRUGS (10)
  1. GABAPENTIN. [Concomitant]
     Active Substance: GABAPENTIN
  2. IMIPRAMINE [Concomitant]
     Active Substance: IMIPRAMINE
  3. JALYN [Concomitant]
     Active Substance: DUTASTERIDE\TAMSULOSIN HYDROCHLORIDE
  4. NEXIUM [Concomitant]
     Active Substance: ESOMEPRAZOLE MAGNESIUM
  5. LEVODOPA [Concomitant]
     Active Substance: LEVODOPA
  6. LIPITOR [Concomitant]
     Active Substance: ATORVASTATIN CALCIUM
  7. CYMBALTA [Concomitant]
     Active Substance: DULOXETINE HYDROCHLORIDE
  8. CARBIDOPA. [Concomitant]
     Active Substance: CARBIDOPA
  9. ROPINIROLE. [Suspect]
     Active Substance: ROPINIROLE
  10. ALLOPURINOL. [Concomitant]
     Active Substance: ALLOPURINOL

REACTIONS (11)
  - Fall [None]
  - Dehydration [None]
  - Overdose [None]
  - Cerebral haemorrhage [None]
  - Syncope [None]
  - Facial bones fracture [None]
  - Carotid arteriosclerosis [None]
  - Carotid artery stenosis [None]
  - Head injury [None]
  - Azotaemia [None]
  - Fracture [None]

NARRATIVE: CASE EVENT DATE: 20140210
